FAERS Safety Report 5316445-1 (Version None)
Quarter: 2007Q2

REPORT INFORMATION
  Report Type: 
  Country: None (occurrence: None)
  Receive Date: 20070504
  Receipt Date: 20070423
  Transmission Date: 20071010
  Serious: Yes (Other)
  Sender: FDA-Public Use
  Company Number: PHFR2007GB00939

PATIENT
  Age: 48 Year
  Sex: Male

DRUGS (4)
  1. CLOZARIL [Suspect]
     Indication: SCHIZOPHRENIA
     Dosage: 100MG OM / 150MG ON
     Route: 048
     Dates: start: 20070205, end: 20070221
  2. CLOZARIL [Suspect]
     Dosage: 100 MG, BID
     Route: 048
     Dates: start: 20070222, end: 20070223
  3. MIRTAZAPINE [Concomitant]
     Indication: DEPRESSION
     Dosage: 45 MG / DAY
     Route: 048
     Dates: start: 20060916, end: 20070224
  4. VENLAFAXINE HCL [Concomitant]
     Indication: PSYCHOTIC DISORDER
     Dosage: 150MG / DAY
     Route: 048
     Dates: start: 20061223, end: 20070224

REACTIONS (6)
  - CONFUSIONAL STATE [None]
  - DISORIENTATION [None]
  - DIZZINESS [None]
  - LETHARGY [None]
  - MEMORY IMPAIRMENT [None]
  - TEMPERATURE REGULATION DISORDER [None]
